FAERS Safety Report 18640580 (Version 1)
Quarter: 2020Q4

REPORT INFORMATION
  Report Type: Report from Study
  Country: EG (occurrence: EG)
  Receive Date: 20201221
  Receipt Date: 20201221
  Transmission Date: 20210114
  Serious: Yes (Hospitalization)
  Sender: FDA-Public Use
  Company Number: EG-AMGEN-EGYSL2020205061

PATIENT
  Age: 67 Year
  Sex: Male

DRUGS (13)
  1. EXFORGE [Concomitant]
     Active Substance: AMLODIPINE BESYLATE\VALSARTAN
     Dosage: UNK
  2. ONE ALPHA [Concomitant]
     Active Substance: ALFACALCIDOL
  3. CONCOR [Concomitant]
     Active Substance: BISOPROLOL FUMARATE
  4. REPATHA [Suspect]
     Active Substance: EVOLOCUMAB
     Indication: LOW DENSITY LIPOPROTEIN INCREASED
     Dosage: UNK UNK, Q2WK
     Route: 065
  5. CEREBROLYSIN [Concomitant]
     Active Substance: CEREBROLYSIN
  6. CRESTOR [Concomitant]
     Active Substance: ROSUVASTATIN CALCIUM
  7. PLAVIX [Concomitant]
     Active Substance: CLOPIDOGREL BISULFATE
     Dosage: UNK
  8. EZETROL [Concomitant]
     Active Substance: EZETIMIBE
     Dosage: UNK
  9. VERSERC [Concomitant]
  10. TRENTAL [Concomitant]
     Active Substance: PENTOXIFYLLINE
  11. EPREX [Concomitant]
     Active Substance: ERYTHROPOIETIN
  12. FEBURIC [Concomitant]
     Active Substance: FEBUXOSTAT
     Dosage: UNK
  13. KETOSTERIL [Concomitant]
     Active Substance: AMINO ACIDS, SOURCE UNSPECIFIED

REACTIONS (2)
  - Hypersensitivity [Unknown]
  - Hypotension [Unknown]
